FAERS Safety Report 11778008 (Version 1)
Quarter: 2015Q4

REPORT INFORMATION
  Report Type: Spontaneous
  Country: US (occurrence: US)
  Receive Date: 20151125
  Receipt Date: 20151125
  Transmission Date: 20160304
  Serious: Yes (Hospitalization, Other)
  Sender: FDA-Public Use
  Company Number: US-ASTRAZENECA-2015SF11580

PATIENT
  Age: 76 Year
  Sex: Female

DRUGS (4)
  1. PULMICORT TURBUHALER [Suspect]
     Active Substance: BUDESONIDE
     Route: 055
  2. OMEPRAZOLE. [Suspect]
     Active Substance: OMEPRAZOLE
     Route: 048
  3. METOPROLOL [Suspect]
     Active Substance: METOPROLOL
     Route: 048
  4. SYMBICORT [Suspect]
     Active Substance: BUDESONIDE\FORMOTEROL FUMARATE DIHYDRATE
     Route: 055

REACTIONS (7)
  - Ovarian cancer [Not Recovered/Not Resolved]
  - Abdominal pain [Unknown]
  - Balance disorder [Unknown]
  - Fall [Unknown]
  - Drug ineffective [Unknown]
  - Metastasis [Not Recovered/Not Resolved]
  - Sternal fracture [Unknown]

NARRATIVE: CASE EVENT DATE: 2010
